FAERS Safety Report 16093834 (Version 1)
Quarter: 2019Q1

REPORT INFORMATION
  Report Type: Other
  Country: FR (occurrence: FR)
  Receive Date: 20190320
  Receipt Date: 20190320
  Transmission Date: 20190418
  Serious: Yes (Other)
  Sender: FDA-Public Use
  Company Number: FR-MACLEODS PHARMACEUTICALS US LTD-MAC2019020513

PATIENT

DRUGS (14)
  1. AMLODIPINE BESYLATE. [Suspect]
     Active Substance: AMLODIPINE BESYLATE
     Indication: HYPERTENSION
     Dosage: 5 MILLIGRAM, QD
     Route: 048
  2. ROSUVASTATIN. [Suspect]
     Active Substance: ROSUVASTATIN
     Indication: HYPERCHOLESTEROLAEMIA
     Dosage: 5 MILLIGRAM, QD
     Route: 048
     Dates: end: 20190107
  3. DUTASTERIDE. [Suspect]
     Active Substance: DUTASTERIDE
     Indication: BENIGN PROSTATIC HYPERPLASIA
     Dosage: 0.5 MILLIGRAM, QD
     Route: 048
  4. VILDAGLIPTIN [Suspect]
     Active Substance: VILDAGLIPTIN
     Indication: TYPE 2 DIABETES MELLITUS
     Dosage: 100 MILLIGRAM, QD, GALVUS 50 MGTABLET
     Route: 048
  5. SOLIFENACIN SUCCINATE. [Suspect]
     Active Substance: SOLIFENACIN SUCCINATE
     Indication: URINARY INCONTINENCE
     Dosage: 5 MILLIGRAM, QD, VESICARE 5 MG, FILM COATED TABLET.
     Route: 048
  6. ALFUZOSIN [Suspect]
     Active Substance: ALFUZOSIN
     Indication: BENIGN PROSTATIC HYPERPLASIA
     Dosage: 10 MILLIGRAM, QD
     Route: 048
  7. MOVICOL [Suspect]
     Active Substance: POLYETHYLENE GLYCOL 3350\POTASSIUM CHLORIDE\SODIUM BICARBONATE\SODIUM CHLORIDE
     Indication: CONSTIPATION
     Dosage: 1 DOSAGE FORM, QD
     Route: 048
  8. TELMISARTAN/HYDROCHLOROTHIAZIDE TABLET [Suspect]
     Active Substance: HYDROCHLOROTHIAZIDE\TELMISARTAN
     Dosage: 1 DOSAGE FORM, QD
     Route: 048
  9. PARACETAMOL [Suspect]
     Active Substance: ACETAMINOPHEN
     Indication: PAIN
     Dosage: UNK, DAFALGAN
     Route: 048
  10. LYSINE ASPIRIN [Suspect]
     Active Substance: ASPIRIN DL-LYSINE
     Indication: PROPHYLAXIS
     Dosage: 75 MILLIGRAM, QD
     Route: 048
  11. COLESTYRAMINE [Suspect]
     Active Substance: CHOLESTYRAMINE
     Indication: PRURITUS
     Dosage: 3 DOSAGE FORM, QD
     Route: 048
     Dates: start: 20181217, end: 20181231
  12. PERMIXON [Suspect]
     Active Substance: HERBALS\SAW PALMETTO
     Indication: BENIGN PROSTATIC HYPERPLASIA
     Dosage: 320 MILLIGRAM, QD
     Route: 048
  13. L-THYROXINE SODIUM TABLET [Suspect]
     Active Substance: LEVOTHYROXINE SODIUM
     Indication: HYPOTHYROIDISM
     Dosage: 1 DOSAGE FORM, QD,100 MICROGRAMS, DIVISIBLE TABLETS
     Route: 048
  14. VESICARE [Suspect]
     Active Substance: SOLIFENACIN SUCCINATE
     Indication: URINARY INCONTINENCE
     Dosage: 5 MILLIGRAM, QD
     Route: 048

REACTIONS (1)
  - Liver function test abnormal [Not Recovered/Not Resolved]

NARRATIVE: CASE EVENT DATE: 20181217
